FAERS Safety Report 7029206-2 (Version None)
Quarter: 2010Q4

REPORT INFORMATION
  Report Type: 
  Country: None (occurrence: None)
  Receive Date: 20101005
  Receipt Date: 20100921
  Transmission Date: 20110411
  Serious: Yes (Other)
  Sender: FDA-Public Use
  Company Number: GB-MYLANLABS-2010S1017269

PATIENT
  Age: 77 Year
  Sex: Male

DRUGS (9)
  1. ALLOPURINOL [Suspect]
     Route: 065
  2. BISOPROLOL [Concomitant]
     Route: 065
  3. BENDROFLUMETHIAZIDE [Concomitant]
     Route: 065
  4. ATORVASTATIN [Concomitant]
     Route: 065
  5. FINASTERIDE [Concomitant]
     Route: 065
  6. RAMIPRIL [Concomitant]
     Route: 065
  7. QUININE [Concomitant]
     Dosage: AS NEEDED
     Route: 065
  8. TAMSULOSIN [Concomitant]
     Route: 065
  9. SODIUM BICARBONATE [Concomitant]
     Route: 065

REACTIONS (4)
  - BLOOD CREATININE INCREASED [None]
  - C-REACTIVE PROTEIN INCREASED [None]
  - DRUG RASH WITH EOSINOPHILIA AND SYSTEMIC SYMPTOMS [None]
  - HAEMOGLOBIN DECREASED [None]
